FAERS Safety Report 4977429-6 (Version None)
Quarter: 2006Q2

REPORT INFORMATION
  Report Type: 
  Country: None (occurrence: None)
  Receive Date: 20060413
  Receipt Date: 20060403
  Transmission Date: 20061013
  Serious: Yes (Hospitalization, Other)
  Sender: FDA-Public Use
  Company Number: 028-20785-05090106

PATIENT
  Age: 38 Year
  Sex: Male

DRUGS (1)
  1. THALOMID [Suspect]
     Indication: MULTIPLE MYELOMA
     Dosage: 200 MG, DAILY, ORAL
     Route: 048
     Dates: start: 20050101, end: 20050701

REACTIONS (3)
  - DISEASE PROGRESSION [None]
  - FEMUR FRACTURE [None]
  - OSTEOLYSIS [None]
